FAERS Safety Report 16240372 (Version 9)
Quarter: 2020Q1

REPORT INFORMATION
  Report Type: Spontaneous
  Country: US (occurrence: US)
  Receive Date: 20190425
  Receipt Date: 20200319
  Transmission Date: 20200409
  Serious: Yes (Other)
  Sender: FDA-Public Use
  Company Number: US-PFIZER INC-2019174574

PATIENT
  Age: 64 Year
  Sex: Male
  Weight: 103 kg

DRUGS (3)
  1. XELJANZ XR [Suspect]
     Active Substance: TOFACITINIB CITRATE
     Indication: RHEUMATOID ARTHRITIS
     Dosage: UNK, ALTERNATE DAY
     Route: 048
  2. XELJANZ XR [Suspect]
     Active Substance: TOFACITINIB CITRATE
     Dosage: 11 MG, 1X/DAY (DAILY IN THE MORNING)
     Route: 048
  3. DILAUDID [Concomitant]
     Active Substance: HYDROMORPHONE HYDROCHLORIDE
     Indication: PAIN
     Dosage: 4 MG

REACTIONS (14)
  - Tendon injury [Unknown]
  - Pain [Recovering/Resolving]
  - Bronchitis [Unknown]
  - Lung disorder [Unknown]
  - Sensitivity to weather change [Unknown]
  - Limb injury [Recovered/Resolved]
  - Intentional product misuse [Unknown]
  - Muscle rupture [Unknown]
  - Drug ineffective [Unknown]
  - Condition aggravated [Unknown]
  - Rheumatoid arthritis [Recovered/Resolved]
  - Memory impairment [Unknown]
  - Malaise [Unknown]
  - Nervousness [Unknown]

NARRATIVE: CASE EVENT DATE: 201801
